FAERS Safety Report 10598405 (Version 1)
Quarter: 2014Q4

REPORT INFORMATION
  Report Type: Spontaneous
  Country: US (occurrence: None)
  Receive Date: 20141119
  Receipt Date: 20141119
  Transmission Date: 20150529
  Serious: No
  Sender: FDA-Public Use
  Company Number: 1000070034

PATIENT
  Sex: Male

DRUGS (5)
  1. BLODD PRESSURE MEDICATIONS (NOS) [Concomitant]
  2. TUDORZA PRESSAIR [Suspect]
     Active Substance: ACLIDINIUM BROMIDE
     Indication: EMPHYSEMA
     Dosage: 800MCG (400MCG, 2 IN 1 D) RESPIRATORY (INHALATION)
     Route: 055
     Dates: start: 201408
  3. INJECTIONS FOR MACULAR DEGENERATION (NOS) [Concomitant]
  4. VITAMIN B (VITAMIN B COMPLEX) [Concomitant]
  5. VITAMIN D [Concomitant]
     Active Substance: CHOLECALCIFEROL

REACTIONS (2)
  - Visual impairment [None]
  - Muscle spasms [None]

NARRATIVE: CASE EVENT DATE: 201408
